FAERS Safety Report 7711714-X (Version None)
Quarter: 2011Q3

REPORT INFORMATION
  Report Type: 
  Country: None (occurrence: None)
  Receive Date: 20110826
  Receipt Date: 20110819
  Transmission Date: 20111222
  Serious: Yes (Other)
  Sender: FDA-Public Use
  Company Number: US-JNJFOC-20110705467

PATIENT
  Sex: Female
  Weight: 92.53 kg

DRUGS (2)
  1. ELMIRON [Suspect]
     Indication: CYSTITIS INTERSTITIAL
     Route: 048
     Dates: start: 20100101, end: 20110601
  2. ELMIRON [Suspect]
     Route: 048
     Dates: start: 20110601

REACTIONS (2)
  - ABNORMAL LOSS OF WEIGHT [None]
  - INCORRECT DOSE ADMINISTERED [None]
